FAERS Safety Report 16892260 (Version 1)
Quarter: 2019Q4

REPORT INFORMATION
  Report Type: Not Available
  Country: JP (occurrence: JP)
  Receive Date: 20191007
  Receipt Date: 20191007
  Transmission Date: 20200122
  Serious: Yes (Hospitalization)
  Sender: FDA-Public Use
  Company Number: JP-ANIPHARMA-2019-JP-000193

PATIENT
  Age: 77 Year
  Sex: Male

DRUGS (10)
  1. FEBURIC [Suspect]
     Active Substance: FEBUXOSTAT
     Dosage: 20 MG QD
     Route: 048
     Dates: start: 20181108
  2. NO MATCH [Suspect]
     Active Substance: UNSPECIFIED INGREDIENT
     Dosage: 2.5 G TID
     Route: 050
     Dates: start: 20190408
  3. THYRADIN S [Suspect]
     Active Substance: LEVOTHYROXINE SODIUM
     Dosage: 75 UG QD
     Route: 048
  4. BELSOMRA [Suspect]
     Active Substance: SUVOREXANT
     Dosage: 15 MG QD
     Route: 048
  5. TRIAZOLAM. [Suspect]
     Active Substance: TRIAZOLAM
     Dosage: .125 MG QD
     Route: 048
  6. GLIMEPIRIDE. [Suspect]
     Active Substance: GLIMEPIRIDE
     Dosage: 1 MG QD
     Route: 050
  7. ZOLPIDEM [Suspect]
     Active Substance: ZOLPIDEM TARTRATE
     Dosage: 2.5 MG QD
     Route: 048
  8. BAYASPIRIN [Suspect]
     Active Substance: ASPIRIN
     Dosage: UNK
     Route: 048
     Dates: start: 20190101
  9. CANDESARTAN CILEXETIL. [Suspect]
     Active Substance: CANDESARTAN CILEXETIL
     Indication: PRODUCT USED FOR UNKNOWN INDICATION
     Dosage: 4 MG UNK / 4 MG UNK
     Route: 048
     Dates: start: 20181118
  10. ACTOS [Suspect]
     Active Substance: PIOGLITAZONE HYDROCHLORIDE
     Dosage: 15 MG QD
     Route: 048

REACTIONS (2)
  - Orthostatic hypotension [Recovered/Resolved]
  - Transient ischaemic attack [Recovered/Resolved]

NARRATIVE: CASE EVENT DATE: 20190101
